FAERS Safety Report 9103114 (Version 1)
Quarter: 2013Q1

REPORT INFORMATION
  Report Type: Spontaneous
  Country: BR (occurrence: BR)
  Receive Date: 20130219
  Receipt Date: 20130219
  Transmission Date: 20140127
  Serious: Yes (Death)
  Sender: FDA-Public Use
  Company Number: PHHY2013BR015879

PATIENT
  Age: 82 Year
  Sex: Male

DRUGS (2)
  1. GALVUS [Suspect]
  2. DIOVAN [Suspect]
     Dosage: 320 MG, UNK

REACTIONS (1)
  - Cardiac disorder [Fatal]
